FAERS Safety Report 8615776-7 (Version None)
Quarter: 2012Q3

REPORT INFORMATION
  Report Type: 
  Country: None (occurrence: None)
  Receive Date: 20120823
  Receipt Date: 20120817
  Transmission Date: 20120928
  Serious: Yes (Hospitalization)
  Sender: FDA-Public Use
  Company Number: FR-ROCHE-1096915

PATIENT
  Sex: Male

DRUGS (9)
  1. BENDAMUSTINE [Suspect]
     Indication: MANTLE CELL LYMPHOMA
     Dosage: ON D1 AND D2 PER CYCLE, STRENGTH: 2.5 MG/ML
     Route: 041
     Dates: start: 20120709, end: 20120710
  2. MABTHERA [Suspect]
     Indication: MANTLE CELL LYMPHOMA
     Route: 042
     Dates: start: 20120709
  3. PRAZOSIN [Concomitant]
     Dosage: 5 DF/D
     Route: 048
  4. BORTEZOMIB [Suspect]
     Dates: end: 20120716
  5. GLICLAZIDE [Concomitant]
     Route: 048
  6. CLOPIDEGREL [Concomitant]
     Route: 048
  7. PREGABALIN [Concomitant]
     Route: 048
     Dates: start: 20120709
  8. BORTEZOMIB [Suspect]
     Indication: MANTLE CELL LYMPHOMA
     Dosage: D1, D4, D8 AND D11 PER CYCLE
     Route: 058
     Dates: start: 20120709, end: 20120712
  9. DEXAMETHASONE [Suspect]
     Indication: MANTLE CELL LYMPHOMA

REACTIONS (1)
  - ILEUS [None]
